FAERS Safety Report 5156099-0 (Version None)
Quarter: 2006Q4

REPORT INFORMATION
  Report Type: 
  Country: None (occurrence: None)
  Receive Date: 20061122
  Receipt Date: 20061025
  Transmission Date: 20070319
  Serious: Yes (Hospitalization, Disabling, Other)
  Sender: FDA-Public Use
  Company Number: PHFR2006GB03186

PATIENT
  Age: 67 Year
  Sex: Female
  Weight: 71.5 kg

DRUGS (10)
  1. TEGRETOL [Suspect]
     Indication: CONVULSION
     Dosage: 200 MG, BID
     Route: 048
     Dates: start: 20060525
  2. TEGRETOL [Suspect]
     Dosage: 1 DF, QD
     Route: 048
     Dates: end: 20060701
  3. LOPERAMIDE [Concomitant]
     Indication: IRRITABLE BOWEL SYNDROME
     Dosage: 2 MG, PRN
     Route: 048
  4. MEBEVERINE [Concomitant]
     Dosage: 135MG / DAY
     Route: 048
  5. METFORMIN [Concomitant]
     Indication: DIABETES MELLITUS
     Dosage: 500 MG, TID
     Route: 048
  6. DHC [Concomitant]
     Indication: OSTEOARTHRITIS
     Dosage: 90 MG, BID
     Route: 048
  7. ATENOLOL [Concomitant]
     Indication: HYPERTENSION
     Dosage: 50MG / DAY
     Route: 048
  8. NIFEDIPINE [Concomitant]
     Indication: HYPERTENSION
     Dosage: 20MG / DAY
     Route: 048
  9. TEMAZEPAM [Concomitant]
     Dosage: 10MG / DAY
     Route: 048
  10. TEMAZEPAM [Concomitant]
     Dosage: 10MG / DAY
     Route: 048

REACTIONS (13)
  - ABDOMINAL PAIN [None]
  - ALANINE AMINOTRANSFERASE INCREASED [None]
  - ASPARTATE AMINOTRANSFERASE INCREASED [None]
  - BLOOD ALKALINE PHOSPHATASE INCREASED [None]
  - BLOOD BILIRUBIN INCREASED [None]
  - DECREASED APPETITE [None]
  - DIARRHOEA [None]
  - GAMMA-GLUTAMYLTRANSFERASE INCREASED [None]
  - HEPATOCELLULAR DAMAGE [None]
  - INSOMNIA [None]
  - LIVER FUNCTION TEST ABNORMAL [None]
  - MALAISE [None]
  - WEIGHT DECREASED [None]
